FAERS Safety Report 8026911-6 (Version None)
Quarter: 2011Q4

REPORT INFORMATION
  Report Type: 
  Country: None (occurrence: None)
  Receive Date: 20111130
  Receipt Date: 20110822
  Transmission Date: 20120403
  Serious: Yes (Hospitalization, Other)
  Sender: FDA-Public Use
  Company Number: US201107002490

PATIENT
  Age: 67 Year
  Sex: Male
  Weight: 88.9 kg

DRUGS (9)
  1. ATENOLOL [Concomitant]
  2. METFORMIN HCL [Concomitant]
  3. SOMA [Concomitant]
  4. XALATAN [Concomitant]
  5. COMBIVENT (IPRATROPIUM BROMIDE, SALBUTAMOL SULFATE) INHALER [Concomitant]
  6. ALLEGRA D (FEXOFENADINE HYDROCHLORIDE, PSEUDOEPHEDRINE HYDROCHLORIDE) [Concomitant]
  7. GABAPENTIN [Concomitant]
  8. SULFAMETHIZOLE  (SULFAMETHIZOLE) TABLET [Concomitant]
  9. BYETTA [Suspect]
     Indication: DIABETES MELLITUS
     Dosage: 5 UG, BID, SUBCUTANEOUS
     Route: 058
     Dates: start: 20080509, end: 20080621

REACTIONS (1)
  - PANCREATITIS ACUTE [None]
